FAERS Safety Report 15069438 (Version 1)
Quarter: 2018Q2

REPORT INFORMATION
  Report Type: Spontaneous
  Country: US (occurrence: US)
  Receive Date: 20180626
  Receipt Date: 20180626
  Transmission Date: 20180711
  Serious: No
  Sender: FDA-Public Use
  Company Number: US-AMGEN-USASP2011017954

PATIENT

DRUGS (1)
  1. NEULASTA [Suspect]
     Active Substance: PEGFILGRASTIM
     Indication: CHEMOTHERAPY
     Dosage: UNK

REACTIONS (2)
  - Chills [Unknown]
  - Night sweats [Unknown]
